FAERS Safety Report 8855807 (Version 1)
Quarter: 2012Q4

REPORT INFORMATION
  Report Type: 
  Country: US (occurrence: US)
  Receive Date: 20121023
  Receipt Date: 20121023
  Transmission Date: 20130627
  Serious: No
  Sender: FDA-Public Use
  Company Number: US-AMGEN-USASP2012058772

PATIENT
  Sex: Female
  Weight: 202 kg

DRUGS (10)
  1. TOPAMAX [Concomitant]
     Dosage: 25 mg, UNK
  2. LITHIUM CARBONATE [Concomitant]
     Dosage: 150 mg, UNK
  3. ENBREL [Suspect]
     Indication: PRODUCT USED FOR UNKNOWN INDICATION
     Dosage: 50 mg, qwk
     Route: 058
  4. FOLIC ACID [Concomitant]
     Dosage: 1 mg, UNK
  5. METHOTREXATE [Concomitant]
     Dosage: 2.5 mg, UNK
  6. LAMICTAL [Concomitant]
     Dosage: 150 mg, UNK
  7. CELEXA                             /00582602/ [Concomitant]
     Dosage: 20 mg, UNK
  8. POTASSIUM [Concomitant]
     Dosage: 75 mg, UNK
  9. LIBRAX /00033301/ [Concomitant]
     Dosage: UNK
  10. MULTIVITAMINS [Concomitant]
     Dosage: UNK

REACTIONS (2)
  - Injection site bruising [Recovered/Resolved]
  - Rheumatoid arthritis [Unknown]
